FAERS Safety Report 14033797 (Version 1)
Quarter: 2017Q4

REPORT INFORMATION
  Report Type: Spontaneous
  Country: US (occurrence: US)
  Receive Date: 20171003
  Receipt Date: 20171003
  Transmission Date: 20180321
  Serious: Yes (Disabling)
  Sender: FDA-Public Use
  Company Number: None

PATIENT
  Sex: Male
  Weight: 65.7 kg

DRUGS (9)
  1. BRIMONIDINE TARTRATE. [Concomitant]
     Active Substance: BRIMONIDINE TARTRATE
  2. TERAZOSIN [Concomitant]
     Active Substance: TERAZOSIN\TERAZOSIN HYDROCHLORIDE
  3. TURMERIC [Concomitant]
     Active Substance: HERBALS\TURMERIC
  4. PRESERVISION AREDS 2 EYE VITAMINS [Concomitant]
  5. LATANOPROST 0.005% [Suspect]
     Active Substance: LATANOPROST
     Indication: GLAUCOMA
     Dosage: ?          QUANTITY:1 DROP(S);?
     Route: 047
     Dates: start: 20170601, end: 20170918
  6. FINASTERIDE. [Concomitant]
     Active Substance: FINASTERIDE
  7. MULTI-VITAMINS [Concomitant]
  8. SAW PALMETTO [Concomitant]
     Active Substance: HERBALS\SAW PALMETTO
  9. COMBO ACETYL L-CARNITINE/APLHA LIPOIC ACID [Concomitant]

REACTIONS (6)
  - Nausea [None]
  - Vertigo [None]
  - Dysstasia [None]
  - Dizziness postural [None]
  - Fall [None]
  - Malaise [None]

NARRATIVE: CASE EVENT DATE: 20170825
